FAERS Safety Report 9717509 (Version 2)
Quarter: 2013Q4

REPORT INFORMATION
  Report Type: Spontaneous
  Country: US (occurrence: US)
  Receive Date: 20131127
  Receipt Date: 20131127
  Transmission Date: 20140711
  Serious: No
  Sender: FDA-Public Use
  Company Number: US-GILEAD-2008-0019606

PATIENT
  Sex: Female
  Weight: 140.61 kg

DRUGS (10)
  1. LETAIRIS [Suspect]
     Indication: PULMONARY ARTERIAL HYPERTENSION
     Route: 048
     Dates: start: 20080903
  2. LASIX [Concomitant]
     Route: 048
  3. LISINOPRIL [Concomitant]
     Route: 048
  4. SULAR [Concomitant]
     Route: 048
  5. ALBUTEROL [Concomitant]
     Route: 055
  6. IPRATROPIUM [Concomitant]
     Route: 048
  7. THEO-DUR [Concomitant]
     Route: 048
  8. SINGULAIR [Concomitant]
     Route: 048
  9. PANTOPRAZOLE [Concomitant]
     Route: 048
  10. CALCIUM [Concomitant]
     Route: 048

REACTIONS (1)
  - Paraesthesia [Unknown]
